FAERS Safety Report 9578998 (Version 1)
Quarter: 2013Q4

REPORT INFORMATION
  Report Type: Spontaneous
  Country: US (occurrence: US)
  Receive Date: 20131001
  Receipt Date: 20131001
  Transmission Date: 20140711
  Serious: No
  Sender: FDA-Public Use
  Company Number: US-AMGEN-USASP2013015880

PATIENT
  Age: 21 Year
  Sex: Female
  Weight: 52.15 kg

DRUGS (3)
  1. ENBREL [Suspect]
     Indication: PRODUCT USED FOR UNKNOWN INDICATION
     Dosage: 50 MG, 2 TIMES/WK
     Route: 058
  2. ZOLOFT [Concomitant]
     Dosage: 25 MG, UNK
  3. ORTHO-TRI-CYCLEN LO [Concomitant]
     Dosage: UNK

REACTIONS (1)
  - Influenza like illness [Recovered/Resolved]
